FAERS Safety Report 5789488-1 (Version None)
Quarter: 2008Q2

REPORT INFORMATION
  Report Type: 
  Country: None (occurrence: None)
  Receive Date: 20080626
  Receipt Date: 20080212
  Transmission Date: 20081010
  Serious: No
  Sender: FDA-Public Use
  Company Number: US-ASTRAZENECA-2008UW00987

PATIENT
  Age: 66 Year
  Sex: Male
  Weight: 86.2 kg

DRUGS (4)
  1. PULMICORT RESPULES [Suspect]
     Indication: EMPHYSEMA
     Route: 055
  2. DUONEB [Suspect]
  3. SPIRIVA [Concomitant]
  4. FORADIL [Concomitant]

REACTIONS (4)
  - ABDOMINAL PAIN UPPER [None]
  - CHEST PAIN [None]
  - DRUG ADMINISTRATION ERROR [None]
  - NAUSEA [None]
